FAERS Safety Report 10435147 (Version 1)
Quarter: 2014Q1

REPORT INFORMATION
  Report Type: Spontaneous
  Country: US (occurrence: None)
  Receive Date: 20130702
  Receipt Date: 20130702
  Transmission Date: 20141002
  Serious: Yes (Other)
  Sender: FDA-Public Use
  Company Number: 1269652

PATIENT
  Sex: Female

DRUGS (1)
  1. BUPIVACAINE HCL INJ, USP (BUPIVACAINE HYDROCHLORIDE) [Suspect]
     Indication: CAESAREAN SECTION

REACTIONS (2)
  - Dyspnoea [None]
  - Maternal exposure during delivery [None]
